FAERS Safety Report 24567879 (Version 2)
Quarter: 2024Q4

REPORT INFORMATION
  Report Type: Spontaneous
  Country: AR (occurrence: AR)
  Receive Date: 20241031
  Receipt Date: 20241123
  Transmission Date: 20250114
  Serious: Yes (Death, Hospitalization)
  Sender: BOEHRINGER INGELHEIM
  Company Number: AR-BoehringerIngelheim-2024-BI-059795

PATIENT
  Age: 59 Year
  Sex: Male

DRUGS (2)
  1. OFEV [Suspect]
     Active Substance: NINTEDANIB
     Indication: Interstitial lung disease
     Route: 002
     Dates: start: 2018
  2. COVID-19 vaccination [Concomitant]
     Indication: Product used for unknown indication

REACTIONS (1)
  - COVID-19 [Fatal]
